FAERS Safety Report 6458635-0 (Version None)
Quarter: 2009Q4

REPORT INFORMATION
  Report Type: 
  Country: None (occurrence: None)
  Receive Date: 20091127
  Receipt Date: 20091112
  Transmission Date: 20100525
  Serious: Yes (Other)
  Sender: FDA-Public Use
  Company Number: ES-ELI_LILLY_AND_COMPANY-ES200911003739

PATIENT
  Age: 79 Year
  Sex: Female

DRUGS (3)
  1. ZYPREXA [Suspect]
     Indication: ANXIETY
     Dosage: 5 MG, UNKNOWN
     Route: 065
     Dates: end: 20090101
  2. RIVOTRIL [Concomitant]
     Dosage: UNK, UNKNOWN
     Route: 065
  3. VENLAFAXINA [Concomitant]
     Dosage: UNK, UNKNOWN
     Route: 065

REACTIONS (5)
  - AGORAPHOBIA [None]
  - GAIT DISTURBANCE [None]
  - MAJOR DEPRESSION [None]
  - OFF LABEL USE [None]
  - WEIGHT INCREASED [None]
